FAERS Safety Report 14376152 (Version 4)
Quarter: 2018Q1

REPORT INFORMATION
  Report Type: Spontaneous
  Country: US (occurrence: US)
  Receive Date: 20180111
  Receipt Date: 20180316
  Transmission Date: 20180509
  Serious: Yes (Hospitalization, Other)
  Sender: FDA-Public Use
  Company Number: US-NOVOPROD-578115

PATIENT
  Age: 74 Year
  Sex: Male

DRUGS (5)
  1. NOVOLOG [Suspect]
     Active Substance: INSULIN ASPART
     Indication: TYPE 2 DIABETES MELLITUS
     Dosage: 5 U, BEFORE MEALS
     Route: 058
     Dates: start: 20171128
  2. PREDNISONE. [Suspect]
     Active Substance: PREDNISONE
     Indication: PRODUCT USED FOR UNKNOWN INDICATION
     Dosage: UNK
     Route: 048
  3. LEVEMIR [Suspect]
     Active Substance: INSULIN DETEMIR
     Indication: TYPE 2 DIABETES MELLITUS
     Dosage: 10 U, QD AT BEDTIME
     Route: 058
     Dates: start: 20171128
  4. MYCOPHENOLATE [Suspect]
     Active Substance: MYCOPHENOLIC ACID
     Indication: PRODUCT USED FOR UNKNOWN INDICATION
  5. LEVEMIR [Suspect]
     Active Substance: INSULIN DETEMIR
     Dosage: 5 U, WITH NOVOLOG
     Route: 058

REACTIONS (6)
  - Intentional product use issue [Not Recovered/Not Resolved]
  - Blood glucose fluctuation [Unknown]
  - Hospitalisation [Unknown]
  - Systemic lupus erythematosus [Unknown]
  - Skin discolouration [Unknown]
  - Blood glucose increased [Not Recovered/Not Resolved]

NARRATIVE: CASE EVENT DATE: 201712
